FAERS Safety Report 15961567 (Version 1)
Quarter: 2019Q1

REPORT INFORMATION
  Report Type: Spontaneous
  Country: US (occurrence: US)
  Receive Date: 20190214
  Receipt Date: 20190214
  Transmission Date: 20190417
  Serious: Yes (Other)
  Sender: FDA-Public Use
  Company Number: None

PATIENT
  Age: 34 Year
  Sex: Female
  Weight: 72 kg

DRUGS (1)
  1. CITRANATAL HARMONY [Suspect]
     Active Substance: .ALPHA.-TOCOPHEROL, DL-\CALCIUM CITRATE\CHOLECALCIFEROL\DOCONEXENT\DOCUSATE SODIUM\FOLIC ACID\IRON PENTACARBONYL\PYRIDOXINE HYDROCHLORIDE
     Indication: PREGNANCY
     Dosage: ?          QUANTITY:1 CAPSULE(S);?
     Route: 048
     Dates: start: 20190107, end: 20190121

REACTIONS (1)
  - Migraine [None]

NARRATIVE: CASE EVENT DATE: 20190207
